FAERS Safety Report 22355802 (Version 1)
Quarter: 2023Q2

REPORT INFORMATION
  Report Type: Spontaneous
  Country: CN (occurrence: CN)
  Receive Date: 20230523
  Receipt Date: 20230523
  Transmission Date: 20230721
  Serious: Yes (Hospitalization, Other)
  Sender: FDA-Public Use
  Company Number: CN-SUN PHARMACEUTICAL INDUSTRIES LTD-2023R1-389456

PATIENT
  Age: 32 Year
  Sex: Female

DRUGS (3)
  1. METHYLPREDNISOLONE [Suspect]
     Active Substance: METHYLPREDNISOLONE
     Indication: Immune thrombocytopenia
     Dosage: 24 MILLIGRAM
     Route: 065
  2. PREDNISONE [Suspect]
     Active Substance: PREDNISONE
     Indication: Immune thrombocytopenia
     Dosage: 20 MILLIGRAM
     Route: 065
  3. CYCLOSPORINE [Suspect]
     Active Substance: CYCLOSPORINE
     Indication: Immune thrombocytopenia
     Dosage: UNK
     Route: 065

REACTIONS (6)
  - Transverse sinus thrombosis [Unknown]
  - Ecchymosis [Unknown]
  - Vaginal haemorrhage [Unknown]
  - Dizziness [Unknown]
  - Petechiae [Unknown]
  - Faeces discoloured [Unknown]
